FAERS Safety Report 12908463 (Version 5)
Quarter: 2022Q1

REPORT INFORMATION
  Report Type: Report from Study
  Country: US (occurrence: US)
  Receive Date: 20161103
  Receipt Date: 20220215
  Transmission Date: 20220424
  Serious: Yes (Hospitalization, Other)
  Sender: FDA-Public Use
  Company Number: US-JAZZ-2016-US-021459

PATIENT
  Age: 49 Year
  Sex: Female

DRUGS (24)
  1. XYREM [Suspect]
     Active Substance: SODIUM OXYBATE
     Indication: Somnolence
     Dosage: 2.25 G, BID
     Route: 048
     Dates: start: 201505, end: 201505
  2. XYREM [Suspect]
     Active Substance: SODIUM OXYBATE
     Indication: Narcolepsy
     Dosage: DOSE ADJUSTMENTS
     Route: 048
     Dates: start: 201505, end: 201506
  3. XYREM [Suspect]
     Active Substance: SODIUM OXYBATE
     Dosage: 4.5 G, BID
     Route: 048
     Dates: start: 201506, end: 2015
  4. XYREM [Suspect]
     Active Substance: SODIUM OXYBATE
     Dosage: 4.5 G, BID
     Route: 048
     Dates: start: 201605, end: 201609
  5. XYREM [Suspect]
     Active Substance: SODIUM OXYBATE
     Dosage: 4.5 G, QD
     Route: 048
     Dates: start: 201609, end: 20161019
  6. NORCO [Suspect]
     Active Substance: ACETAMINOPHEN\HYDROCODONE BITARTRATE
     Indication: Product used for unknown indication
  7. WELLBUTRIN [Concomitant]
     Active Substance: BUPROPION HYDROCHLORIDE
     Indication: Product used for unknown indication
     Dosage: UNK
     Dates: start: 20150301
  8. NUVIGIL [Concomitant]
     Active Substance: ARMODAFINIL
     Indication: Product used for unknown indication
     Dosage: UNK
     Dates: start: 20150101
  9. MONTELUKAST SODIUM [Concomitant]
     Active Substance: MONTELUKAST SODIUM
     Indication: Product used for unknown indication
     Dosage: UNK
     Dates: start: 20141201
  10. PROVENTIL HFA                      /00139501/ [Concomitant]
     Indication: Product used for unknown indication
     Dosage: UNK
     Dates: start: 20141201
  11. ZYRTEC [Concomitant]
     Active Substance: CETIRIZINE HYDROCHLORIDE
     Indication: Product used for unknown indication
     Dosage: UNK
     Dates: start: 20141201
  12. PANTOPRAZOLE SODIUM [Concomitant]
     Active Substance: PANTOPRAZOLE SODIUM
     Indication: Product used for unknown indication
     Dosage: UNK
     Dates: start: 20140401
  13. VITAMIN D3 [Concomitant]
     Active Substance: CHOLECALCIFEROL
     Indication: Product used for unknown indication
     Dosage: UNK
     Dates: start: 20130313
  14. LEVOTHYROXINE [Concomitant]
     Active Substance: LEVOTHYROXINE
     Indication: Product used for unknown indication
     Dosage: UNK
     Dates: start: 20120301
  15. ALLEGRA D-12 HOUR [Concomitant]
     Active Substance: FEXOFENADINE HYDROCHLORIDE\PSEUDOEPHEDRINE HYDROCHLORIDE
     Indication: Product used for unknown indication
  16. ENDUR-ACIN [Concomitant]
     Indication: Product used for unknown indication
  17. EPIPEN [Concomitant]
     Active Substance: EPINEPHRINE
     Indication: Product used for unknown indication
  18. WELLBUTRIN XL [Concomitant]
     Active Substance: BUPROPION HYDROCHLORIDE
     Dosage: 0010
     Dates: start: 20150301
  19. PROAIR HFA [Concomitant]
     Active Substance: ALBUTEROL SULFATE
     Dosage: 0000
     Dates: start: 20141201
  20. SUNOSI [Concomitant]
     Active Substance: SOLRIAMFETOL
     Dosage: 0000
     Dates: start: 20210412
  21. METHOCARBAMOL [Concomitant]
     Active Substance: METHOCARBAMOL
     Dosage: 0000
     Dates: start: 20211115
  22. ZOFRAN [Concomitant]
     Active Substance: ONDANSETRON HYDROCHLORIDE
     Dosage: 0000
     Dates: start: 20211118
  23. GABAPENTIN [Concomitant]
     Active Substance: GABAPENTIN
     Dosage: 0000
     Dates: start: 20211115
  24. TYLENOL [Concomitant]
     Active Substance: ACETAMINOPHEN

REACTIONS (7)
  - Spinal fusion surgery [Unknown]
  - Spinal operation [Unknown]
  - Cyst [Unknown]
  - Hiccups [Unknown]
  - Muscle spasms [Unknown]
  - Nausea [Unknown]
  - Vomiting [Unknown]

NARRATIVE: CASE EVENT DATE: 20161001
